FAERS Safety Report 6518952-2 (Version None)
Quarter: 2009Q4

REPORT INFORMATION
  Report Type: 
  Country: None (occurrence: None)
  Receive Date: 20091228
  Receipt Date: 20091217
  Transmission Date: 20100525
  Serious: Yes (Other)
  Sender: FDA-Public Use
  Company Number: US-SANOFI-AVENTIS-2009SA010398

PATIENT
  Age: 70 Year
  Sex: Male

DRUGS (2)
  1. MULTAQ [Suspect]
     Indication: ATRIAL FIBRILLATION
     Route: 048
     Dates: start: 20091201
  2. EFFEXOR [Concomitant]
     Indication: ANXIETY

REACTIONS (2)
  - ABDOMINAL DISCOMFORT [None]
  - ATRIAL FIBRILLATION [None]
